FAERS Safety Report 7721940 (Version 8)
Quarter: 2013Q1

REPORT INFORMATION
  Report Type: Spontaneous
  Country: US (occurrence: US)
  Receive Date: 20101220
  Receipt Date: 20130125
  Transmission Date: 20140127
  Serious: Yes (Hospitalization)
  Sender: FDA-Public Use
  Company Number: US-BIOGENIDEC-2010BI043438

PATIENT
  Age: 64 Year
  Sex: Female
  Weight: 103 kg

DRUGS (3)
  1. TYSABRI [Suspect]
     Indication: MULTIPLE SCLEROSIS
     Route: 042
     Dates: start: 20100604
  2. ARTHROTEC [Concomitant]
     Indication: BACK DISORDER
  3. AMPYRA [Concomitant]
     Indication: GAIT DISTURBANCE
     Dates: start: 201007

REACTIONS (9)
  - Osteonecrosis [Recovered/Resolved]
  - Acquired claw toe [Not Recovered/Not Resolved]
  - Syncope [Recovered/Resolved]
  - Bone contusion [Recovered/Resolved]
  - Stress fracture [Recovered/Resolved]
  - Arthralgia [Recovered/Resolved]
  - Anaemia [Recovered/Resolved]
  - Vitamin D decreased [Unknown]
  - Osteoarthritis [Not Recovered/Not Resolved]
